FAERS Safety Report 9950222 (Version 1)
Quarter: 2014Q1

REPORT INFORMATION
  Report Type: Report from Study
  Country: US (occurrence: US)
  Receive Date: 20140304
  Receipt Date: 20140304
  Transmission Date: 20141002
  Serious: No
  Sender: FDA-Public Use
  Company Number: US-ABBVIE-13P-163-1067797-00

PATIENT
  Age: 40 Year
  Sex: Female
  Weight: 95.34 kg

DRUGS (9)
  1. HUMIRA [Suspect]
     Indication: RHEUMATOID ARTHRITIS
     Dates: start: 200611
  2. SERTRALINE [Concomitant]
     Indication: DEPRESSION
  3. Q-VAR [Concomitant]
     Indication: ASTHMA
  4. MULTIVITAMINS [Concomitant]
     Indication: VITAMIN SUPPLEMENTATION
  5. FLONASE [Concomitant]
     Indication: HYPERSENSITIVITY
  6. ALBUTEROL [Concomitant]
     Indication: ASTHMA
     Dosage: INHALER
  7. PREDNISONE [Concomitant]
     Indication: RHEUMATOID ARTHRITIS
  8. BENADRYL [Concomitant]
     Indication: HYPERSENSITIVITY
  9. ADVIL [Concomitant]
     Indication: PAIN

REACTIONS (1)
  - Influenza like illness [Not Recovered/Not Resolved]
